FAERS Safety Report 5978283-6 (Version None)
Quarter: 2008Q4

REPORT INFORMATION
  Report Type: 
  Country: None (occurrence: None)
  Receive Date: 20081126
  Receipt Date: 20081114
  Transmission Date: 20090506
  Serious: Yes (Hospitalization)
  Sender: FDA-Public Use
  Company Number: M-08-1132

PATIENT
  Age: 80 Year
  Sex: Male

DRUGS (14)
  1. PACERONE [Suspect]
     Indication: ATRIAL FIBRILLATION
     Dosage: 200 MG, QD, PO
     Route: 048
     Dates: start: 20040101
  2. OMEGA-3 FATTY ACID [Concomitant]
  3. LANTUS [Concomitant]
  4. NOVOLOG [Concomitant]
  5. IMDUR [Concomitant]
  6. ASPIRIN [Concomitant]
  7. METOPROLOL TARTRATE [Concomitant]
  8. POTASSIUM CHLORIDE [Concomitant]
  9. LASIX [Concomitant]
  10. SYNTHROID [Concomitant]
  11. MULTI-VITAMIN [Concomitant]
  12. FOLIC ACID [Concomitant]
  13. LOSARTAN POTASSIUM [Concomitant]
  14. ZOCOR [Concomitant]

REACTIONS (11)
  - ALVEOLITIS ALLERGIC [None]
  - ATAXIA [None]
  - ATRIAL FIBRILLATION [None]
  - ATRIAL FLUTTER [None]
  - CONDITION AGGRAVATED [None]
  - CONSTIPATION [None]
  - GAIT DISTURBANCE [None]
  - REFUSAL OF TREATMENT BY PATIENT [None]
  - SMALL INTESTINAL OBSTRUCTION [None]
  - TREMOR [None]
  - VISUAL FIELD DEFECT [None]
